FAERS Safety Report 4691866-9 (Version None)
Quarter: 2005Q2

REPORT INFORMATION
  Report Type: 
  Country: None (occurrence: None)
  Receive Date: 20050615
  Receipt Date: 20050615
  Transmission Date: 20051028
  Serious: Yes (Hospitalization)
  Sender: FDA-Public Use
  Company Number: None

PATIENT
  Age: 78 Year
  Sex: Female
  Weight: 63.5036 kg

DRUGS (4)
  1. CEFTRIAXONE [Suspect]
     Indication: ESCHERICHIA SEPSIS
     Dosage: 2 GM IVPB Q12 HOUR
  2. TOPROL-XL [Concomitant]
  3. DIGOXIN [Concomitant]
  4. DEMADEX [Concomitant]

REACTIONS (1)
  - NEUTROPENIA [None]
